FAERS Safety Report 6349562-8 (Version None)
Quarter: 2009Q3

REPORT INFORMATION
  Report Type: 
  Country: None (occurrence: None)
  Receive Date: 20090911
  Receipt Date: 20090903
  Transmission Date: 20100115
  Serious: Yes (Death, Other)
  Sender: FDA-Public Use
  Company Number: GB-PFIZER INC-2009263905

PATIENT
  Age: 44 Year

DRUGS (5)
  1. METHYLPREDNISOLONE AND METHYLPREDNISOLONE ACETATE AND METHYLPREDNISOLO [Suspect]
     Indication: DIARRHOEA
  2. CYCLOSPORINE [Suspect]
  3. ALEMTUZUMAB [Concomitant]
  4. FLUDARABINE [Concomitant]
  5. MELPHALAN [Concomitant]

REACTIONS (6)
  - ACUTE GRAFT VERSUS HOST DISEASE [None]
  - DEATH [None]
  - DIARRHOEA [None]
  - GASTROENTERITIS NOROVIRUS [None]
  - NAUSEA [None]
  - VOMITING [None]
